FAERS Safety Report 17416129 (Version 1)
Quarter: 2020Q1

REPORT INFORMATION
  Report Type: Spontaneous
  Country: US (occurrence: US)
  Receive Date: 20200130
  Receipt Date: 20200130
  Transmission Date: 20200409
  Serious: No
  Sender: FDA-Public Use
  Company Number: None

PATIENT
  Age: 43 Year
  Sex: Female
  Weight: 87.09 kg

DRUGS (1)
  1. EMGALITY [Suspect]
     Active Substance: GALCANEZUMAB-GNLM
     Indication: MIGRAINE
     Route: 058
     Dates: start: 20190913, end: 20191218

REACTIONS (5)
  - Injection site erythema [None]
  - Injection site warmth [None]
  - Injection site discharge [None]
  - Injection site pain [None]
  - Injection site pruritus [None]

NARRATIVE: CASE EVENT DATE: 20191218
